FAERS Safety Report 23193442 (Version 2)
Quarter: 2023Q4

REPORT INFORMATION
  Report Type: Spontaneous
  Country: US (occurrence: US)
  Receive Date: 20231116
  Receipt Date: 20231130
  Transmission Date: 20240110
  Serious: Yes (Death, Other)
  Sender: FDA-Public Use
  Company Number: US-AstraZeneca-CH-00502984A

PATIENT
  Sex: Male
  Weight: 104.32 kg

DRUGS (1)
  1. ULTOMIRIS [Suspect]
     Active Substance: RAVULIZUMAB-CWVZ
     Indication: Paroxysmal nocturnal haemoglobinuria
     Dosage: UNK
     Route: 065

REACTIONS (5)
  - Renal failure [Fatal]
  - Paroxysmal nocturnal haemoglobinuria [Fatal]
  - Thrombosis [Fatal]
  - Cerebral thrombosis [Fatal]
  - Therapeutic response shortened [Unknown]
